FAERS Safety Report 18099636 (Version 3)
Quarter: 2021Q2

REPORT INFORMATION
  Report Type: Report from Study
  Country: US (occurrence: US)
  Receive Date: 20200731
  Receipt Date: 20210628
  Transmission Date: 20210717
  Serious: Yes (Death, Other)
  Sender: FDA-Public Use
  Company Number: NVSC2020US211940

PATIENT
  Sex: Male

DRUGS (2)
  1. MEKINIST [Suspect]
     Active Substance: TRAMETINIB DIMETHYL SULFOXIDE
     Indication: LUNG CANCER METASTATIC
     Dosage: 2 MG, QD
     Route: 048
  2. TAFINLAR [Suspect]
     Active Substance: DABRAFENIB MESYLATE
     Indication: LUNG CANCER METASTATIC
     Dosage: 150 MG, BID
     Route: 048

REACTIONS (5)
  - General physical health deterioration [Fatal]
  - Headache [Not Recovered/Not Resolved]
  - Malignant neoplasm progression [Fatal]
  - Loss of consciousness [Recovered/Resolved]
  - Lung cancer metastatic [Fatal]
